FAERS Safety Report 8132442-5 (Version None)
Quarter: 2012Q1

REPORT INFORMATION
  Report Type: 
  Country: None (occurrence: None)
  Receive Date: 20120213
  Receipt Date: 20120206
  Transmission Date: 20120608
  Serious: Yes (Other)
  Sender: FDA-Public Use
  Company Number: US-BAYER-2012-013971

PATIENT
  Age: 70 Year
  Sex: Male
  Weight: 92.99 kg

DRUGS (10)
  1. RAMIPRIL [Concomitant]
     Dosage: UNK
  2. METOCLOPRAMIDE [Concomitant]
     Dosage: UNK
  3. ASPIRIN [Suspect]
     Dosage: UNK
  4. PLAVIX [Suspect]
     Indication: STENT PLACEMENT
     Dosage: DAILY DOSE 75 MG
     Route: 048
     Dates: start: 20110101
  5. ROSUVASTATIN [Concomitant]
     Dosage: UNK
  6. AMARYL [Concomitant]
     Dosage: UNK
  7. FISH OIL [Concomitant]
     Dosage: UNK
  8. PANTOPRAZOLE [Concomitant]
     Dosage: UNK
  9. METFORMIN HCL [Concomitant]
  10. VITAMIN B-12 [Concomitant]
     Dosage: UNK

REACTIONS (3)
  - CONTUSION [None]
  - PAIN IN EXTREMITY [None]
  - HAEMORRHAGE [None]
